FAERS Safety Report 6096415-9 (Version None)
Quarter: 2009Q1

REPORT INFORMATION
  Report Type: 
  Country: None (occurrence: None)
  Receive Date: 20090227
  Receipt Date: 20081211
  Transmission Date: 20090719
  Serious: No
  Sender: FDA-Public Use
  Company Number: A0760026A

PATIENT
  Age: 36 Year
  Sex: Male

DRUGS (3)
  1. LAMICTAL [Suspect]
     Dosage: 100MG TWICE PER DAY
     Route: 048
     Dates: start: 20040601
  2. BENADRYL [Concomitant]
  3. CELEBREX [Concomitant]

REACTIONS (2)
  - CHEST DISCOMFORT [None]
  - URTICARIA [None]
